FAERS Safety Report 8219774-7 (Version None)
Quarter: 2012Q1

REPORT INFORMATION
  Report Type: 
  Country: None (occurrence: None)
  Receive Date: 20120319
  Receipt Date: 20120314
  Transmission Date: 20120608
  Serious: No
  Sender: FDA-Public Use
  Company Number: US-PFIZER INC-2012067756

PATIENT
  Sex: Female
  Weight: 50.794 kg

DRUGS (1)
  1. AZITHROMYCIN [Suspect]
     Indication: CHLAMYDIAL INFECTION
     Dosage: 1000 MG, 1X/DAY
     Route: 048
     Dates: start: 20120314, end: 20120314

REACTIONS (1)
  - VOMITING [None]
